FAERS Safety Report 6720608-8 (Version None)
Quarter: 2010Q2

REPORT INFORMATION
  Report Type: 
  Country: None (occurrence: None)
  Receive Date: 20100510
  Receipt Date: 20100423
  Transmission Date: 20101027
  Serious: Yes (Other)
  Sender: FDA-Public Use
  Company Number: 2010-0884

PATIENT
  Age: 74 Year
  Sex: Female
  Weight: 46 kg

DRUGS (5)
  1. DYSPORT [Suspect]
     Indication: OFF LABEL USE
     Dosage: (SINGLE CYCLE), INTRAMUSCULAR
     Route: 030
     Dates: start: 20100303, end: 20100303
  2. DYSPORT [Suspect]
     Indication: SKIN WRINKLING
     Dosage: (SINGLE CYCLE), INTRAMUSCULAR
     Route: 030
     Dates: start: 20100303, end: 20100303
  3. SINGULAIR [Concomitant]
  4. CLARINEX (NARINE) [Concomitant]
  5. HYPERTHYROID MEDICATION (ANTITHYROID PREPARATIONS) [Concomitant]

REACTIONS (6)
  - APHASIA [None]
  - FATIGUE [None]
  - INCORRECT DOSE ADMINISTERED [None]
  - MUSCULAR WEAKNESS [None]
  - OFF LABEL USE [None]
  - TREMOR [None]
